FAERS Safety Report 15211696 (Version 2)
Quarter: 2018Q3

REPORT INFORMATION
  Report Type: Spontaneous
  Country: IT (occurrence: IT)
  Receive Date: 20180729
  Receipt Date: 20180827
  Transmission Date: 20181010
  Serious: Yes (Hospitalization)
  Sender: FDA-Public Use
  Company Number: PHHY2018IT056076

PATIENT
  Age: 55 Year
  Sex: Female

DRUGS (4)
  1. GILENYA [Suspect]
     Active Substance: FINGOLIMOD HYDROCHLORIDE
     Indication: DRUG ABUSE
     Dosage: 41 DF, UNK
     Route: 048
     Dates: start: 20130306
  2. BETAHISTINE HYDROCHLORIDE [Suspect]
     Active Substance: BETAHISTINE HYDROCHLORIDE
     Indication: DRUG ABUSE
     Dosage: 11 DF, UNK
     Route: 048
  3. VESIKER [Suspect]
     Active Substance: SOLIFENACIN
     Indication: DRUG ABUSE
     Dosage: 30 DF, UNK
     Route: 048
  4. EUTIROX [Suspect]
     Active Substance: LEVOTHYROXINE SODIUM
     Indication: DRUG ABUSE
     Dosage: 91 DF, UNK
     Route: 048

REACTIONS (2)
  - Suicide attempt [Recovered/Resolved]
  - Drug abuse [Recovered/Resolved]

NARRATIVE: CASE EVENT DATE: 20180503
